FAERS Safety Report 23552000 (Version 1)
Quarter: 2024Q1

REPORT INFORMATION
  Report Type: Spontaneous
  Country: US (occurrence: US)
  Receive Date: 20240222
  Receipt Date: 20240222
  Transmission Date: 20240410
  Serious: Yes (Hospitalization)
  Sender: FDA-Public Use
  Company Number: US-CHIESI-2024CHF00824

PATIENT
  Age: 1 Year
  Sex: Female

DRUGS (4)
  1. BETHKIS [Suspect]
     Active Substance: TOBRAMYCIN
     Indication: Chronic respiratory disease
     Dosage: 300 MILLIGRAM, BID
     Dates: start: 20161117
  2. BETHKIS [Suspect]
     Active Substance: TOBRAMYCIN
     Indication: Off label use
  3. PENICILLIN V [Concomitant]
     Active Substance: PENICILLIN V
     Indication: Product used for unknown indication
     Dosage: UNK
  4. TOPAMAX [Concomitant]
     Active Substance: TOPIRAMATE
     Indication: Product used for unknown indication
     Dosage: UNK

REACTIONS (3)
  - Ill-defined disorder [Unknown]
  - Off label use [Not Recovered/Not Resolved]
  - Off label use [Not Recovered/Not Resolved]

NARRATIVE: CASE EVENT DATE: 20161117
